FAERS Safety Report 13771612 (Version 1)
Quarter: 2017Q3

REPORT INFORMATION
  Report Type: Spontaneous
  Country: US (occurrence: US)
  Receive Date: 20170720
  Receipt Date: 20170720
  Transmission Date: 20171127
  Serious: No
  Sender: FDA-Public Use
  Company Number: US-PFIZER INC-2017309844

PATIENT
  Age: 68 Year
  Sex: Female

DRUGS (2)
  1. ADVAIR HFA [Concomitant]
     Active Substance: FLUTICASONE PROPIONATE\SALMETEROL XINAFOATE
     Indication: ASTHMA
     Dosage: UNK
  2. LYRICA [Suspect]
     Active Substance: PREGABALIN
     Indication: NEURITIS
     Dosage: 75 MG, TOOK ONE AND A HALF PILL
     Dates: start: 20170707, end: 20170709

REACTIONS (4)
  - Loss of personal independence in daily activities [Recovering/Resolving]
  - Feeling abnormal [Unknown]
  - Gait disturbance [Recovering/Resolving]
  - Intentional product misuse [Unknown]
